FAERS Safety Report 10449198 (Version 1)
Quarter: 2014Q3

REPORT INFORMATION
  Report Type: Spontaneous
  Country: US (occurrence: None)
  Receive Date: 20140911
  Receipt Date: 20140911
  Transmission Date: 20150326
  Serious: No
  Sender: FDA-Public Use
  Company Number: None

PATIENT
  Age: 60 Year
  Sex: Female

DRUGS (3)
  1. CIMZIA [Suspect]
     Active Substance: CERTOLIZUMAB PEGOL
     Indication: COLITIS ULCERATIVE
     Route: 058
     Dates: start: 20140611
  2. PREDNISONE. [Concomitant]
     Active Substance: PREDNISONE
  3. LIELDA [Concomitant]

REACTIONS (2)
  - Swelling [None]
  - Arthralgia [None]

NARRATIVE: CASE EVENT DATE: 20140903
